FAERS Safety Report 4717733-X (Version None)
Quarter: 2005Q3

REPORT INFORMATION
  Report Type: 
  Country: None (occurrence: None)
  Receive Date: 20050714
  Receipt Date: 20041115
  Transmission Date: 20060218
  Serious: Yes (Life-Threatening)
  Sender: FDA-Public Use
  Company Number: 04P-163-0280646-00

PATIENT
  Age: 17 Year
  Sex: Female
  Weight: 60 kg

DRUGS (5)
  1. ULTANE [Suspect]
     Indication: INDUCTION OF ANAESTHESIA
     Dosage: INHALATION
     Route: 055
     Dates: start: 20041115, end: 20041115
  2. OXYGEN [Concomitant]
  3. MEDROXYPROGESTERONE ACETATE [Concomitant]
  4. IV FLUIDS [Concomitant]
  5. OXYCOCET [Concomitant]

REACTIONS (1)
  - BRADYCARDIA [None]
